FAERS Safety Report 25539380 (Version 1)
Quarter: 2025Q3

REPORT INFORMATION
  Report Type: Spontaneous
  Country: MX (occurrence: MX)
  Receive Date: 20250710
  Receipt Date: 20250710
  Transmission Date: 20251020
  Serious: Yes (Death, Hospitalization)
  Sender: ASTELLAS
  Company Number: MX-ASTELLAS-2025-AER-037540

PATIENT
  Age: 38 Year

DRUGS (2)
  1. GILTERITINIB [Suspect]
     Active Substance: GILTERITINIB
     Indication: Acute myeloid leukaemia
     Route: 048
     Dates: start: 202505
  2. GILTERITINIB [Suspect]
     Active Substance: GILTERITINIB
     Route: 050

REACTIONS (2)
  - Febrile neutropenia [Fatal]
  - Neutropenic infection [Fatal]
